FAERS Safety Report 20491966 (Version 1)
Quarter: 2022Q1

REPORT INFORMATION
  Report Type: Spontaneous
  Country: US (occurrence: US)
  Receive Date: 20220218
  Receipt Date: 20220218
  Transmission Date: 20220423
  Serious: No
  Sender: FDA-Public Use
  Company Number: US-PFIZER INC-2019324063

PATIENT
  Age: 73 Year
  Sex: Female

DRUGS (2)
  1. LYRICA [Suspect]
     Active Substance: PREGABALIN
     Indication: Neuropathy peripheral
     Dosage: 50 MG (TAKE 1 CAPSULE BY MOUTH ONCE DAILY TO TWICE DAILY ONCE 90 DAYS)
     Route: 048
  2. LYRICA [Suspect]
     Active Substance: PREGABALIN
     Dosage: 150 MG, DAILY (1 CAP IN AM AND 2 IN PM)
     Route: 048

REACTIONS (1)
  - Therapeutic response unexpected [Unknown]
